FAERS Safety Report 6907038-0 (Version None)
Quarter: 2010Q3

REPORT INFORMATION
  Report Type: 
  Country: None (occurrence: None)
  Receive Date: 20100804
  Receipt Date: 20080915
  Transmission Date: 20110219
  Serious: No
  Sender: FDA-Public Use
  Company Number: US-PFIZER INC-2008077648

PATIENT
  Age: 47 Year
  Sex: Female

DRUGS (3)
  1. ADRIAMYCIN PFS [Suspect]
  2. TAXOTERE [Suspect]
  3. CYTOXAN [Suspect]

REACTIONS (1)
  - HOT FLUSH [None]
